FAERS Safety Report 13462368 (Version 2)
Quarter: 2017Q3

REPORT INFORMATION
  Report Type: Spontaneous
  Country: US (occurrence: US)
  Receive Date: 20170420
  Receipt Date: 20170726
  Transmission Date: 20171127
  Serious: Yes (Death)
  Sender: FDA-Public Use
  Company Number: US-DEPOMED, INC.-US-2017DEP000774

PATIENT
  Sex: Male

DRUGS (2)
  1. ALCOHOL. [Concomitant]
     Active Substance: ALCOHOL
     Indication: PRODUCT USED FOR UNKNOWN INDICATION
     Dosage: UNK
  2. FENTANYL. [Suspect]
     Active Substance: FENTANYL
     Indication: PRODUCT USED FOR UNKNOWN INDICATION
     Dosage: UNK
     Route: 065
     Dates: start: 20160623, end: 20160623

REACTIONS (3)
  - Cardiac arrest [Fatal]
  - Toxicity to various agents [Fatal]
  - Overdose [Fatal]

NARRATIVE: CASE EVENT DATE: 20160623
